FAERS Safety Report 14100869 (Version 1)
Quarter: 2017Q4

REPORT INFORMATION
  Report Type: Spontaneous
  Country: US (occurrence: US)
  Receive Date: 20171018
  Receipt Date: 20171018
  Transmission Date: 20180321
  Serious: Yes (Other)
  Sender: FDA-Public Use
  Company Number: US-ASTRAZENECA-2017SF04922

PATIENT
  Age: 62 Year
  Sex: Female

DRUGS (3)
  1. TAMOXIFEN [Suspect]
     Active Substance: TAMOXIFEN
     Route: 048
  2. IBRANCE [Suspect]
     Active Substance: PALBOCICLIB
     Indication: BREAST CANCER METASTATIC
     Dosage: 125 MG BY MOUTH ONCE A DAY AT DINNER FOR 21 DAYS OFF FOR 7 DAYS
     Route: 048
     Dates: start: 201609
  3. FASLODEX [Suspect]
     Active Substance: FULVESTRANT
     Indication: ANTIOESTROGEN THERAPY
     Dosage: 500 MG INJECTION EVERY 28 DAYS/4 WEEKS
     Route: 030
     Dates: start: 201609

REACTIONS (10)
  - Cerebral disorder [Recovering/Resolving]
  - Breast cancer recurrent [Unknown]
  - Depression [Recovered/Resolved]
  - Memory impairment [Recovered/Resolved]
  - Drug intolerance [Unknown]
  - Arthralgia [Recovering/Resolving]
  - Hypersomnia [Unknown]
  - Fatigue [Recovering/Resolving]
  - Nausea [Unknown]
  - Neuroma [Recovering/Resolving]
